FAERS Safety Report 19621987 (Version 3)
Quarter: 2021Q3

REPORT INFORMATION
  Report Type: Spontaneous
  Country: CA (occurrence: CA)
  Receive Date: 20210728
  Receipt Date: 20210831
  Transmission Date: 20211014
  Serious: No
  Sender: FDA-Public Use
  Company Number: CA-BEH-2021134160

PATIENT
  Age: 65 Year
  Sex: Male
  Weight: 86.8 kg

DRUGS (17)
  1. SOLU?MEDROL [Concomitant]
     Active Substance: METHYLPREDNISOLONE SODIUM SUCCINATE
     Indication: PREMEDICATION
     Dosage: 40 MILLIGRAM
     Route: 042
     Dates: start: 20191106
  2. ALBUREX [Suspect]
     Active Substance: ALBUMIN HUMAN
     Dosage: 2500 MILLILITER, TOT
     Route: 042
     Dates: start: 20191106, end: 20191106
  3. ALBUREX [Suspect]
     Active Substance: ALBUMIN HUMAN
     Dosage: 2500 MILLILITER, TOT ? 10 BOTTLES
     Route: 042
     Dates: start: 20191110, end: 20191110
  4. ALBUREX [Suspect]
     Active Substance: ALBUMIN HUMAN
     Dosage: 2500 MILLILITER, TOT ? 7 BOTTLES
     Route: 042
     Dates: start: 20191113, end: 20191113
  5. PANZYGA [Suspect]
     Active Substance: HUMAN IMMUNOGLOBULIN G
     Dosage: 50 MILLILITER (1/2 FRACTION)
     Route: 065
     Dates: start: 20191106, end: 20191106
  6. BENADRYL [Concomitant]
     Active Substance: DIPHENHYDRAMINE HYDROCHLORIDE
     Indication: PREMEDICATION
     Dosage: 25 MILLIGRAM
     Route: 042
     Dates: start: 20191101
  7. ALBUREX [Suspect]
     Active Substance: ALBUMIN HUMAN
     Indication: TRANSPLANT REJECTION
     Dosage: 2500 MILLILITER (10 BOTTLES)
     Route: 042
     Dates: start: 20191030, end: 20191030
  8. ALBUREX [Suspect]
     Active Substance: ALBUMIN HUMAN
     Indication: CYTOMEGALOVIRUS INFECTION
     Dosage: 2500 MILLILITER, TOT ? (10 VIALS)
     Route: 042
     Dates: start: 20191101, end: 20191101
  9. PANZYGA [Suspect]
     Active Substance: HUMAN IMMUNOGLOBULIN G
     Indication: CYTOMEGALOVIRUS INFECTION
     Dosage: UNK
     Route: 065
     Dates: start: 20191101, end: 20191101
  10. PANZYGA [Suspect]
     Active Substance: HUMAN IMMUNOGLOBULIN G
     Dosage: UNK
     Route: 065
     Dates: start: 20191101, end: 20191101
  11. ALBUREX [Suspect]
     Active Substance: ALBUMIN HUMAN
     Indication: PLASMAPHERESIS
     Dosage: 2500 MILLILITER, TOT ? (4/4 FRACTIONS)
     Route: 042
     Dates: start: 20191104, end: 20191104
  12. BENADRYL [Concomitant]
     Active Substance: DIPHENHYDRAMINE HYDROCHLORIDE
     Dosage: 25 MILLIGRAM
     Route: 042
     Dates: start: 20191106
  13. OXYGEN. [Concomitant]
     Active Substance: OXYGEN
  14. PANZYGA [Suspect]
     Active Substance: HUMAN IMMUNOGLOBULIN G
     Indication: TRANSPLANT REJECTION
     Dosage: 92 MILLILITER
     Route: 065
     Dates: start: 20191101, end: 20191101
  15. PANZYGA [Suspect]
     Active Substance: HUMAN IMMUNOGLOBULIN G
     Dosage: 88 MILLILITER (3/4 FRACTION)
     Route: 065
     Dates: start: 20191104, end: 20191104
  16. BENADRYL [Concomitant]
     Active Substance: DIPHENHYDRAMINE HYDROCHLORIDE
     Dosage: 25 MILLIGRAM
     Route: 042
     Dates: start: 20191104
  17. ALBUREX [Suspect]
     Active Substance: ALBUMIN HUMAN
     Dosage: 2500 MILLILITER, TOT ? 10 BOTTLES
     Route: 042
     Dates: start: 20191108, end: 20191108

REACTIONS (12)
  - Nausea [Unknown]
  - Drug intolerance [Unknown]
  - Cold sweat [Unknown]
  - Skin discolouration [Unknown]
  - Vomiting [Unknown]
  - Drug intolerance [Unknown]
  - Hypotension [Unknown]
  - Hyperhidrosis [Unknown]
  - Dizziness [Unknown]
  - Hot flush [Unknown]
  - Drug intolerance [Unknown]
  - Diarrhoea [Unknown]

NARRATIVE: CASE EVENT DATE: 20191101
